FAERS Safety Report 7354335-3 (Version None)
Quarter: 2011Q1

REPORT INFORMATION
  Report Type: 
  Country: None (occurrence: None)
  Receive Date: 20110316
  Receipt Date: 20110304
  Transmission Date: 20110831
  Serious: Yes (Death)
  Sender: FDA-Public Use
  Company Number: CA-JNJFOC-20091105679

PATIENT
  Sex: Female
  Weight: 66.67 kg

DRUGS (6)
  1. CALCIUM/COLECALCIFEROL [Concomitant]
  2. TIAZAC [Concomitant]
  3. NEXIUM [Concomitant]
     Indication: GASTROINTESTINAL DISORDER THERAPY
  4. IBUPROFEN [Suspect]
     Indication: OSTEOARTHRITIS
     Route: 048
  5. ASPIRIN [Concomitant]
  6. DIOVAN HCT [Concomitant]

REACTIONS (1)
  - DEATH [None]
